FAERS Safety Report 8822489 (Version 1)
Quarter: 2012Q4

REPORT INFORMATION
  Report Type: 
  Country: US (occurrence: US)
  Receive Date: 20121003
  Receipt Date: 20121003
  Transmission Date: 20130627
  Serious: Yes (Other)
  Sender: FDA-Public Use
  Company Number: US-ELI_LILLY_AND_COMPANY-US201204008625

PATIENT
  Age: 46 Year
  Sex: Female
  Weight: 60.32 kg

DRUGS (3)
  1. CYMBALTA [Suspect]
     Indication: FIBROMYALGIA
     Dosage: 30 mg, each evening
     Dates: start: 2005
  2. CYMBALTA [Suspect]
     Dosage: 60 mg, qd
     Dates: start: 20110607
  3. CYMBALTA [Suspect]
     Dosage: 30 mg, qd
     Dates: start: 201111

REACTIONS (6)
  - Influenza like illness [Recovered/Resolved]
  - Musculoskeletal stiffness [Recovered/Resolved]
  - Decreased appetite [Recovered/Resolved]
  - Abdominal pain upper [Recovered/Resolved]
  - Dry mouth [Recovered/Resolved]
  - Drug ineffective [Recovered/Resolved]
